FAERS Safety Report 16291484 (Version 1)
Quarter: 2019Q2

REPORT INFORMATION
  Report Type: Spontaneous
  Country: IT (occurrence: IT)
  Receive Date: 20190509
  Receipt Date: 20190509
  Transmission Date: 20190711
  Serious: Yes (Life-Threatening)
  Sender: FDA-Public Use
  Company Number: IT-TEVA-2019-IT-1046981

PATIENT
  Age: 11 Year
  Sex: Female
  Weight: 44 kg

DRUGS (2)
  1. LEVETIRACETAM. [Concomitant]
     Active Substance: LEVETIRACETAM
     Indication: EPILEPSY CONGENITAL
     Dosage: 1500MG PER 1DAY
     Route: 048
     Dates: start: 20190331, end: 20190401
  2. CARBAMAZEPINE. [Suspect]
     Active Substance: CARBAMAZEPINE
     Indication: EPILEPSY CONGENITAL
     Dosage: 700MG PER 1DAY
     Dates: start: 20190331, end: 20190401

REACTIONS (1)
  - Hepatitis fulminant [Not Recovered/Not Resolved]

NARRATIVE: CASE EVENT DATE: 20190401
